FAERS Safety Report 9092888 (Version 1)
Quarter: 2013Q1

REPORT INFORMATION
  Report Type: Report from Study
  Country: US (occurrence: US)
  Receive Date: 20130131
  Receipt Date: 20130131
  Transmission Date: 20140127
  Serious: No
  Sender: FDA-Public Use
  Company Number: US-ABBOTT-12P-163-1001875-00

PATIENT
  Age: 62 Year
  Sex: Female

DRUGS (17)
  1. HUMIRA [Suspect]
     Indication: RHEUMATOID ARTHRITIS
     Dates: start: 20120815
  2. JINTELI [Concomitant]
     Indication: HORMONE REPLACEMENT THERAPY
     Dosage: 28 1MG/5MCG DAILY
  3. GENERIC CYTOMEL [Concomitant]
     Indication: HYPOTHYROIDISM
     Dosage: 25MCG DAILY
  4. LEVOTHYROXINE [Concomitant]
     Indication: HYPOTHYROIDISM
  5. METOPROLOL SUCCINATE [Concomitant]
     Indication: ATRIAL FIBRILLATION
     Dosage: IN THE MORNING
  6. FLECAINIDE [Concomitant]
     Indication: ATRIAL FIBRILLATION
  7. DITROPAN XL [Concomitant]
     Indication: INCONTINENCE
     Dosage: IN THE MORNING
  8. SINGULAIR [Concomitant]
     Indication: HYPERSENSITIVITY
     Dosage: AT NIGHT FROM AUGUST THROUGH JUNE
  9. REQUIP [Concomitant]
     Indication: RESTLESS LEGS SYNDROME
     Dosage: AT BEDTIME
  10. LEFLUNOMIDE [Concomitant]
     Indication: RHEUMATOID ARTHRITIS
     Dosage: IN THE MORNING
  11. CELEBREX [Concomitant]
     Indication: RHEUMATOID ARTHRITIS
     Dosage: IN THE MORNING
  12. FOLIC ACID [Concomitant]
     Indication: PRODUCT USED FOR UNKNOWN INDICATION
     Dosage: AT BEDTIME
  13. LISINOPRIL [Concomitant]
     Indication: BLOOD PRESSURE
  14. NORVASC [Concomitant]
     Indication: BLOOD PRESSURE
     Dosage: IN THE MORNING
  15. PRISTIQ [Concomitant]
     Indication: DEPRESSION
     Dosage: AT NIGHT
  16. FLONASE [Concomitant]
     Indication: SEASONAL ALLERGY
     Route: 045
     Dates: start: 20120901
  17. PRISTIQ [Concomitant]
     Indication: DEPRESSION
     Dosage: AT BEDTIME

REACTIONS (8)
  - Injection site swelling [Recovered/Resolved]
  - Injection site erythema [Recovered/Resolved]
  - Injection site warmth [Recovered/Resolved]
  - Injection site pruritus [Recovered/Resolved]
  - Injection site swelling [Recovered/Resolved]
  - Injection site erythema [Unknown]
  - Injection site papule [Unknown]
  - Injection site pruritus [Unknown]
